FAERS Safety Report 8946998 (Version 1)
Quarter: 2012Q4

REPORT INFORMATION
  Report Type: 
  Country: IE (occurrence: IE)
  Receive Date: 20121205
  Receipt Date: 20121205
  Transmission Date: 20130627
  Serious: Yes (Hospitalization, Other)
  Sender: FDA-Public Use
  Company Number: IE-ELI_LILLY_AND_COMPANY-IE201208008223

PATIENT
  Sex: Male
  Weight: 146.5 kg

DRUGS (5)
  1. BYDUREON [Suspect]
     Dosage: 2 mg, weekly (1/W)
     Route: 058
     Dates: start: 20120627, end: 20120815
  2. METFORMIN [Concomitant]
     Dosage: UNK, unknown
  3. GLICLAZIDE [Concomitant]
     Dosage: 30 mg, each morning
  4. ROSUVASTATIN [Concomitant]
     Dosage: 20 mg, qd
  5. NEXIUM [Concomitant]
     Dosage: 40 mg, unknown
     Route: 048

REACTIONS (2)
  - Pancreatitis [Recovered/Resolved]
  - Bile duct stone [Recovered/Resolved]
